FAERS Safety Report 5349794-1 (Version None)
Quarter: 2007Q2

REPORT INFORMATION
  Report Type: 
  Country: None (occurrence: None)
  Receive Date: 20070607
  Receipt Date: 20070527
  Transmission Date: 20071010
  Serious: Yes (Other)
  Sender: FDA-Public Use
  Company Number: US-PFIZER INC-2007042644

PATIENT
  Sex: Male

DRUGS (6)
  1. VIAGRA [Suspect]
     Indication: ERECTILE DYSFUNCTION
     Route: 048
  2. DEPAKOTE [Concomitant]
  3. ALLEGRA D 24 HOUR [Concomitant]
  4. KLONOPIN [Concomitant]
  5. CONCERTA [Concomitant]
  6. IBUPROFEN [Concomitant]

REACTIONS (2)
  - DRUG INEFFECTIVE [None]
  - HIP ARTHROPLASTY [None]
